FAERS Safety Report 7210397-5 (Version None)
Quarter: 2011Q1

REPORT INFORMATION
  Report Type: 
  Country: None (occurrence: None)
  Receive Date: 20110105
  Receipt Date: 20101222
  Transmission Date: 20110831
  Serious: Yes (Hospitalization)
  Sender: FDA-Public Use
  Company Number: FR-ASTELLAS-2010EU006659

PATIENT
  Sex: Female

DRUGS (3)
  1. ORBENINE [Concomitant]
     Dosage: UNK
     Route: 065
  2. CLARITIN [Concomitant]
     Dosage: UNK
     Route: 065
  3. PROTOPIC [Suspect]
     Indication: DERMATITIS ATOPIC
     Dosage: UNK
     Route: 061
     Dates: start: 20080101, end: 20100801

REACTIONS (3)
  - LYMPHADENOPATHY [None]
  - SYSTEMIC LUPUS ERYTHEMATOSUS [None]
  - PNEUMONIA [None]
